FAERS Safety Report 19318519 (Version 1)
Quarter: 2021Q2

REPORT INFORMATION
  Report Type: Spontaneous
  Country: US (occurrence: US)
  Receive Date: 20210527
  Receipt Date: 20210527
  Transmission Date: 20210717
  Serious: Yes (Hospitalization)
  Sender: FDA-Public Use
  Company Number: None

PATIENT
  Age: 67 Year
  Sex: Female
  Weight: 66.15 kg

DRUGS (1)
  1. ZEJULA [Suspect]
     Active Substance: NIRAPARIB
     Indication: OVARIAN CANCER
     Dosage: ?          QUANTITY:3 CAPSULE(S);OTHER FREQUENCY:ONE TIME DAILY;?
     Route: 048
     Dates: start: 20201002, end: 20201130

REACTIONS (5)
  - Vomiting [None]
  - Migraine [None]
  - Urinary tract infection [None]
  - Gastrointestinal pain [None]
  - Thrombosis [None]

NARRATIVE: CASE EVENT DATE: 20201111
